FAERS Safety Report 14839164 (Version 1)
Quarter: 2018Q2

REPORT INFORMATION
  Report Type: Spontaneous
  Country: US (occurrence: US)
  Receive Date: 20180418
  Receipt Date: 20180418
  Transmission Date: 20180711
  Serious: Yes (Death, Life-Threatening, Hospitalization)
  Sender: FDA-Public Use
  Company Number: None

PATIENT
  Age: 78 Year
  Sex: Female
  Weight: 101.25 kg

DRUGS (1)
  1. CEFEPIME [Suspect]
     Active Substance: CEFEPIME HYDROCHLORIDE
     Indication: OSTEOMYELITIS

REACTIONS (6)
  - Decreased appetite [None]
  - Seizure [None]
  - Vomiting [None]
  - Brain injury [None]
  - Hyponatraemia [None]
  - Confusional state [None]

NARRATIVE: CASE EVENT DATE: 20180325
